FAERS Safety Report 15270666 (Version 3)
Quarter: 2019Q1

REPORT INFORMATION
  Report Type: Spontaneous
  Country: ES (occurrence: ES)
  Receive Date: 20180813
  Receipt Date: 20190312
  Transmission Date: 20190417
  Serious: Yes (Life-Threatening, Hospitalization, Other)
  Sender: FDA-Public Use
  Company Number: ES-PFIZER INC-2018321966

PATIENT
  Age: 77 Year
  Sex: Male

DRUGS (1)
  1. HEPARIN SODIUM. [Suspect]
     Active Substance: HEPARIN SODIUM
     Indication: ANTICOAGULANT THERAPY
     Dosage: SYSTEMIC INFUSION

REACTIONS (4)
  - Acute coronary syndrome [Unknown]
  - Prosthetic cardiac valve thrombosis [Unknown]
  - Cardiogenic shock [Unknown]
  - Heparin-induced thrombocytopenia [Recovered/Resolved]
